FAERS Safety Report 9534476 (Version 1)
Quarter: 2013Q2

REPORT INFORMATION
  Report Type: Spontaneous
  Country: US (occurrence: None)
  Receive Date: 20130402
  Receipt Date: 20130402
  Transmission Date: 20140414
  Serious: Yes (Hospitalization, Other)
  Sender: FDA-Public Use
  Company Number: RB-50031-2013

PATIENT
  Age: 0 Day
  Sex: Female

DRUGS (3)
  1. SUBOXONE [Suspect]
     Indication: PRODUCT USED FOR UNKNOWN INDICATION
     Dosage: SUBOXONE DETAILS NOT PROVIDED TRANSPLACENTAL
     Route: 064
  2. SUBOXONE FILM [Suspect]
     Indication: PRODUCT USED FOR UNKNOWN INDICATION
     Dosage: SUBOXONE FILM;  DOSAGE DETAILS NOT PROVIDED TRANSPLACENTAL
     Route: 064
  3. SUBUTEX [Suspect]
     Indication: PRODUCT USED FOR UNKNOWN INDICATION
     Dosage: SUBUTEX DETAILS UNKNOWN TRANSPLACENTAL
     Route: 064

REACTIONS (2)
  - Foetal exposure during pregnancy [None]
  - Tremor neonatal [None]
